FAERS Safety Report 10267885 (Version 1)
Quarter: 2014Q2

REPORT INFORMATION
  Report Type: Spontaneous
  Country: US (occurrence: US)
  Receive Date: 20140630
  Receipt Date: 20140630
  Transmission Date: 20141212
  Serious: No
  Sender: FDA-Public Use
  Company Number: US-ABBVIE-13P-163-1102903-00

PATIENT
  Sex: Male
  Weight: 69.46 kg

DRUGS (6)
  1. NORVIR [Suspect]
     Indication: HIV INFECTION
     Dosage: DAILY
     Dates: start: 2005
  2. LYRICA [Suspect]
     Indication: PAIN
     Dates: start: 2007
  3. LYRICA [Suspect]
     Indication: NERVE INJURY
     Dosage: 150 MG IN AM, 75 MG IN PM
  4. TRUVADA [Suspect]
     Indication: HIV INFECTION
     Dosage: DAILY
     Dates: start: 2005
  5. REYATAZ [Suspect]
     Indication: HIV INFECTION
     Dosage: DAILY
     Dates: start: 2005
  6. UNKNOWN MEDICATION [Concomitant]
     Indication: PAIN

REACTIONS (4)
  - Sexual dysfunction [Not Recovered/Not Resolved]
  - Hypoaesthesia [Not Recovered/Not Resolved]
  - T-lymphocyte count increased [Not Recovered/Not Resolved]
  - Blood cholesterol increased [Not Recovered/Not Resolved]
